FAERS Safety Report 6907294-9 (Version None)
Quarter: 2010Q3

REPORT INFORMATION
  Report Type: 
  Country: None (occurrence: None)
  Receive Date: 20100804
  Receipt Date: 20100727
  Transmission Date: 20110219
  Serious: Yes (Congenital Anomaly)
  Sender: FDA-Public Use
  Company Number: AR-B.I. PHARMACEUTICALS,INC./RIDGEFIELD-2010-BP-08488BP

PATIENT
  Sex: Female

DRUGS (7)
  1. VIRAMUNE [Suspect]
     Indication: DRUG EXPOSURE DURING PREGNANCY
     Route: 064
     Dates: start: 20030724
  2. VIRACEPT [Concomitant]
     Indication: DRUG EXPOSURE DURING PREGNANCY
     Route: 064
     Dates: start: 20030702, end: 20040908
  3. COMBIVIR [Concomitant]
     Indication: DRUG EXPOSURE DURING PREGNANCY
     Route: 064
     Dates: start: 20030702, end: 20040908
  4. COMBIVIR [Concomitant]
     Route: 064
     Dates: start: 20040908
  5. FERROUS SULFATE [Concomitant]
     Indication: DRUG EXPOSURE DURING PREGNANCY
     Route: 064
  6. ISOXSUPRINE HCL [Concomitant]
     Indication: DRUG EXPOSURE DURING PREGNANCY
     Route: 064
  7. NYSTATIN [Concomitant]
     Indication: DRUG EXPOSURE DURING PREGNANCY
     Route: 064

REACTIONS (1)
  - CLEFT PALATE [None]
